FAERS Safety Report 20428111 (Version 1)
Quarter: 2022Q1

REPORT INFORMATION
  Report Type: Spontaneous
  Country: SE (occurrence: SE)
  Receive Date: 20220204
  Receipt Date: 20220204
  Transmission Date: 20220424
  Serious: Yes (Other)
  Sender: FDA-Public Use
  Company Number: None

PATIENT
  Age: 37 Year
  Sex: Male

DRUGS (3)
  1. QUETIAPINE [Suspect]
     Active Substance: QUETIAPINE
     Indication: Depression
     Dosage: QUETIAPINE TEVA 25 MG FILMDRAGERAD TABLET
     Route: 048
     Dates: start: 20211230
  2. BRICANYL [Concomitant]
     Active Substance: TERBUTALINE SULFATE
     Dosage: BRICANYL TURBUHALER 0,5 MG/DOS INHALATIONSPULVER,0.5 MG / DOSE INHALATION IF NECESSARY, ONLY ADJUNCT
     Route: 055
     Dates: start: 20200128
  3. VENLAFAXINE HYDROCHLORIDE [Concomitant]
     Active Substance: VENLAFAXINE HYDROCHLORIDE
     Dosage: 75 MILLIGRAM DAILY; VENLAFAXIN ACTAVIS  75 MG DEPOTKAPSEL, HARD
     Route: 048
     Dates: start: 20200310

REACTIONS (1)
  - Epilepsy [Unknown]

NARRATIVE: CASE EVENT DATE: 20211230
